FAERS Safety Report 7238940-0 (Version None)
Quarter: 2011Q1

REPORT INFORMATION
  Report Type: 
  Country: None (occurrence: None)
  Receive Date: 20110121
  Receipt Date: 20110113
  Transmission Date: 20110831
  Serious: Yes (Hospitalization)
  Sender: FDA-Public Use
  Company Number: NL-MEDIMMUNE-MEDI-0012285

PATIENT
  Sex: Male

DRUGS (2)
  1. SYNAGIS [Suspect]
     Route: 030
     Dates: start: 20110106
  2. SYNAGIS [Suspect]
     Route: 030
     Dates: start: 20100913, end: 20101208

REACTIONS (6)
  - COUGH [None]
  - PYREXIA [None]
  - NASOPHARYNGITIS [None]
  - HYPOPHAGIA [None]
  - WHEEZING [None]
  - DYSPNOEA [None]
